FAERS Safety Report 5758264-8 (Version None)
Quarter: 2008Q2

REPORT INFORMATION
  Report Type: 
  Country: None (occurrence: None)
  Receive Date: 20080604
  Receipt Date: 20080527
  Transmission Date: 20081010
  Serious: Yes (Other)
  Sender: FDA-Public Use
  Company Number: GB-ROCHE-566803

PATIENT
  Age: 32 Year
  Sex: Male

DRUGS (4)
  1. PEGASYS [Suspect]
     Indication: DRUG USE FOR UNKNOWN INDICATION
     Route: 065
     Dates: start: 20080304, end: 20080318
  2. PEGASYS [Suspect]
     Route: 065
     Dates: start: 20080401, end: 20080527
  3. COPEGUS [Suspect]
     Indication: DRUG USE FOR UNKNOWN INDICATION
     Route: 065
     Dates: start: 20080304, end: 20080318
  4. COPEGUS [Suspect]
     Route: 065
     Dates: start: 20080401, end: 20080527

REACTIONS (1)
  - PHLEBITIS [None]
